FAERS Safety Report 9205873 (Version 1)
Quarter: 2013Q2

REPORT INFORMATION
  Report Type: Spontaneous
  Country: GB (occurrence: None)
  Receive Date: 20130401
  Receipt Date: 20130401
  Transmission Date: 20140414
  Serious: Yes (Other)
  Sender: FDA-Public Use
  Company Number: 2013-00897

PATIENT
  Age: 60 Year
  Sex: Female

DRUGS (3)
  1. LISINOPRIL (LISINOPRIL) [Suspect]
     Indication: RENAL DISORDER
     Route: 048
     Dates: start: 200909, end: 20100616
  2. GLICLAZIDE 80 MG TABLETS [Concomitant]
  3. METFORMIN 500 MG TABLETS [Concomitant]

REACTIONS (4)
  - Blood potassium increased [None]
  - Hypertension [None]
  - Eye disorder [None]
  - Renal impairment [None]
